FAERS Safety Report 9627192 (Version 2)
Quarter: 2013Q4

REPORT INFORMATION
  Report Type: Report from Study
  Country: JP (occurrence: JP)
  Receive Date: 20131016
  Receipt Date: 20131016
  Transmission Date: 20140711
  Serious: Yes (Hospitalization, Other)
  Sender: FDA-Public Use
  Company Number: JP-TAKEDA-TCI2013A01227

PATIENT
  Age: 66 Year
  Sex: Male
  Weight: 55 kg

DRUGS (14)
  1. LANSOPRAZOLE [Suspect]
     Indication: PROPHYLAXIS AGAINST GASTROINTESTINAL ULCER
     Dosage: 20 MG, QD
     Route: 048
     Dates: start: 20121207, end: 20130227
  2. LANSOPRAZOLE [Suspect]
     Dosage: 20 MG, QD
     Dates: start: 20120622, end: 20121206
  3. MOBIC [Concomitant]
     Indication: LUMBAR SPINAL STENOSIS
     Route: 048
  4. MOBIC [Concomitant]
     Route: 048
  5. NORSPAN TAPE [Concomitant]
     Indication: NEURITIS
     Route: 062
     Dates: start: 20130111
  6. NORSPAN TAPE [Concomitant]
     Indication: NEURITIS
  7. HICORT [Concomitant]
     Indication: NEURITIS
     Route: 050
     Dates: start: 20121214
  8. HICORT [Concomitant]
     Indication: NEURITIS
  9. XYLOCAINE                          /00033401/ [Concomitant]
     Indication: NEURITIS
     Route: 050
     Dates: start: 20121214
  10. XYLOCAINE                          /00033401/ [Concomitant]
     Indication: NEURITIS
  11. C CYSTEN [Concomitant]
     Indication: ASTHMA
     Route: 048
  12. C CYSTEN [Concomitant]
     Indication: CHRONIC OBSTRUCTIVE PULMONARY DISEASE
     Route: 048
  13. SYMBICORT TURBUHALER [Concomitant]
     Indication: ASTHMA
     Route: 055
  14. SYMBICORT TURBUHALER [Concomitant]
     Indication: CHRONIC OBSTRUCTIVE PULMONARY DISEASE
     Route: 055

REACTIONS (1)
  - Intestinal obstruction [Recovering/Resolving]
